FAERS Safety Report 19173747 (Version 1)
Quarter: 2021Q2

REPORT INFORMATION
  Report Type: Spontaneous
  Country: JP (occurrence: JP)
  Receive Date: 20210423
  Receipt Date: 20210423
  Transmission Date: 20210717
  Serious: Yes (Hospitalization, Other)
  Sender: FDA-Public Use
  Company Number: NVSJ2021JP005657

PATIENT
  Age: 69 Year
  Sex: Male
  Weight: 76 kg

DRUGS (1)
  1. EVEROLIMUS. [Suspect]
     Active Substance: EVEROLIMUS
     Indication: PANCREATIC NEUROENDOCRINE TUMOUR
     Dosage: 10 MG
     Route: 065
     Dates: start: 201509, end: 201607

REACTIONS (3)
  - Interstitial lung disease [Unknown]
  - Gastric antral vascular ectasia [Recovering/Resolving]
  - Gastrointestinal haemorrhage [Unknown]

NARRATIVE: CASE EVENT DATE: 201511
